FAERS Safety Report 17589345 (Version 1)
Quarter: 2020Q1

REPORT INFORMATION
  Report Type: Spontaneous
  Country: US (occurrence: US)
  Receive Date: 20200327
  Receipt Date: 20200327
  Transmission Date: 20200409
  Serious: No
  Sender: FDA-Public Use
  Company Number: US-ALLERGAN-1933077US

PATIENT
  Age: 70 Year
  Sex: Female

DRUGS (5)
  1. LATISSE [Suspect]
     Active Substance: BIMATOPROST
     Indication: GROWTH OF EYELASHES
     Dosage: 2 GTT, SINGLE
     Route: 047
     Dates: start: 20190808, end: 20190808
  2. BLINK [Concomitant]
     Indication: DRY EYE
     Dosage: UNK, PRN
     Route: 047
  3. ANTIHYPERTENSIVES [Concomitant]
     Active Substance: UNSPECIFIED INGREDIENT
     Indication: HYPERTENSION
     Dosage: UNK
  4. REFRESH REPAIR [Concomitant]
     Active Substance: CARBOXYMETHYLCELLULOSE SODIUM\GLYCERIN
     Indication: DRY EYE
     Dosage: 2 GTT, QHS
     Route: 047
  5. UNSPECIFIED THYROID MEDICATION [Concomitant]
     Active Substance: UNSPECIFIED INGREDIENT
     Indication: HYPOTHYROIDISM
     Dosage: UNK

REACTIONS (6)
  - Eye irritation [Not Recovered/Not Resolved]
  - Expired product administered [Unknown]
  - Ocular hyperaemia [Not Recovered/Not Resolved]
  - Incorrect route of product administration [Unknown]
  - Eye pain [Recovered/Resolved]
  - Wrong product administered [Unknown]

NARRATIVE: CASE EVENT DATE: 20190808
